FAERS Safety Report 7546529-9 (Version None)
Quarter: 2011Q2

REPORT INFORMATION
  Report Type: 
  Country: None (occurrence: None)
  Receive Date: 20110614
  Receipt Date: 20110608
  Transmission Date: 20111010
  Serious: Yes (Death)
  Sender: FDA-Public Use
  Company Number: JP-SANOFI-AVENTIS-2011SA024122

PATIENT
  Age: 74 Year
  Sex: Male
  Weight: 75.2 kg

DRUGS (10)
  1. ZOSYN [Concomitant]
     Route: 042
     Dates: start: 20101025, end: 20101026
  2. AMLODIPINE [Concomitant]
     Indication: HYPERTENSION
     Route: 048
     Dates: start: 20101016, end: 20101026
  3. ALLOPURINOL [Concomitant]
     Indication: HYPERURICAEMIA
     Route: 048
     Dates: start: 20101017, end: 20101026
  4. ACECOL [Concomitant]
     Indication: HYPERTENSION
     Route: 048
     Dates: start: 20101019, end: 20101026
  5. TAXOTERE [Suspect]
     Route: 042
     Dates: start: 20101025, end: 20101025
  6. TAXOTERE [Suspect]
     Indication: METASTASES TO LYMPH NODES
     Route: 042
     Dates: start: 20101025, end: 20101025
  7. DEXAMETHASONE SODIUM PHOSPHATE [Concomitant]
     Indication: PREMEDICATION
     Route: 042
     Dates: start: 20101025, end: 20101025
  8. METHYCOBAL [Concomitant]
     Route: 048
     Dates: start: 20100928, end: 20101026
  9. CLINDAMYCIN [Concomitant]
     Route: 042
     Dates: start: 20101022, end: 20101025
  10. MAGNESIUM OXIDE [Concomitant]
     Indication: CONSTIPATION
     Route: 048
     Dates: start: 20101019, end: 20101026

REACTIONS (1)
  - ARRHYTHMIA [None]
